FAERS Safety Report 7907678-6 (Version None)
Quarter: 2011Q4

REPORT INFORMATION
  Report Type: 
  Country: None (occurrence: None)
  Receive Date: 20111110
  Receipt Date: 20111031
  Transmission Date: 20120403
  Serious: Yes (Other)
  Sender: FDA-Public Use
  Company Number: US-BAYER-2011-050579

PATIENT
  Age: 34 Year
  Sex: Female
  Weight: 124.26 kg

DRUGS (7)
  1. YAZ [Suspect]
     Indication: CONTRACEPTION
     Dosage: UNK
     Dates: start: 20070101, end: 20090101
  2. BUPROPION HCL [Concomitant]
     Dosage: 300 MG, QD
     Route: 048
  3. IBUPROFEN [Concomitant]
     Dosage: 600 MG, PRN
     Route: 048
  4. TOPICAL STEROID [Concomitant]
     Indication: PSORIASIS
     Dosage: UNK UNK, PRN
     Route: 061
  5. SUPER B COMPLEX [Concomitant]
     Dosage: UNK
     Route: 048
  6. FIBERCON [Concomitant]
  7. MULTI-VITAMIN [Concomitant]
     Dosage: UNK
     Route: 048

REACTIONS (6)
  - CHOLECYSTITIS CHRONIC [None]
  - GALLBLADDER DISORDER [None]
  - INJURY [None]
  - GASTROINTESTINAL DISORDER [None]
  - PAIN [None]
  - ABDOMINAL DISCOMFORT [None]
